FAERS Safety Report 6803054-8 (Version None)
Quarter: 2010Q2

REPORT INFORMATION
  Report Type: 
  Country: None (occurrence: None)
  Receive Date: 20100628
  Receipt Date: 20100623
  Transmission Date: 20101027
  Serious: Yes (Hospitalization)
  Sender: FDA-Public Use
  Company Number: CH-BAYER-201029896GPV

PATIENT
  Age: 66 Year
  Sex: Male

DRUGS (8)
  1. ASPIRIN [Suspect]
     Indication: DRUG USE FOR UNKNOWN INDICATION
     Route: 048
     Dates: end: 20091115
  2. SINTROM [Suspect]
     Indication: DRUG USE FOR UNKNOWN INDICATION
     Route: 048
     Dates: end: 20091115
  3. CORDARONE [Concomitant]
     Indication: DRUG USE FOR UNKNOWN INDICATION
  4. METOPROLOL SUCCINATE [Concomitant]
     Route: 048
  5. ENATEC [Concomitant]
     Route: 048
  6. CADUET [Concomitant]
     Route: 048
  7. PANTOZOL [Concomitant]
     Route: 048
  8. SERESTA [Concomitant]
     Route: 048

REACTIONS (5)
  - ANAEMIA [None]
  - GASTRIC HAEMORRHAGE [None]
  - HAEMATEMESIS [None]
  - MELAENA [None]
  - PROTHROMBIN TIME PROLONGED [None]
